FAERS Safety Report 12040081 (Version 1)
Quarter: 2016Q1

REPORT INFORMATION
  Report Type: Spontaneous
  Country: US (occurrence: US)
  Receive Date: 20160208
  Receipt Date: 20160208
  Transmission Date: 20160526
  Serious: Yes (Other)
  Sender: FDA-Public Use
  Company Number: US-AMAG PHARMACEUTICALS, INC.-AMAG201500797

PATIENT
  Age: 20 Year
  Sex: Female
  Weight: 54.88 kg

DRUGS (2)
  1. MAKENA [Suspect]
     Active Substance: HYDROXYPROGESTERONE CAPROATE
     Indication: PREMATURE DELIVERY
     Dosage: 250 MG, WEEKLY
     Route: 030
  2. CONCEPT DHA [Concomitant]
     Active Substance: ASCORBIC ACID\BIOTIN\CALCIUM PANTOTHENATE\CUPRIC SULFATE\CYANOCOBALAMIN\FERROUS FUMARATE\FOLIC ACID\IRON\MAGNESIUM SULFATE\NIACIN\OMEGA-3-ACID ETHYL ESTERS\PYRIDOXINE HYDROCHLORIDE\RIBOFLAVIN\THIAMINE MONONITRATE\ZINC SULFATE
     Indication: PREGNANCY
     Dosage: 1 UNK, UNK
     Route: 048
     Dates: start: 20150415

REACTIONS (1)
  - Premature delivery [Recovered/Resolved]

NARRATIVE: CASE EVENT DATE: 20150519
